FAERS Safety Report 7742391-X (Version None)
Quarter: 2011Q3

REPORT INFORMATION
  Report Type: 
  Country: None (occurrence: None)
  Receive Date: 20110829
  Receipt Date: 20110817
  Transmission Date: 20111222
  Serious: Yes (Hospitalization, Other)
  Sender: FDA-Public Use
  Company Number: 2010SP042442

PATIENT
  Age: 29 Year
  Sex: Female

DRUGS (2)
  1. NUVARING [Suspect]
     Indication: CONTRACEPTION
     Dosage: VAG
     Route: 067
     Dates: start: 20070105, end: 20090101
  2. NUVARING [Suspect]
     Indication: HAEMORRHAGE
     Dosage: VAG
     Route: 067
     Dates: start: 20070105, end: 20090101

REACTIONS (7)
  - BILE DUCT STONE [None]
  - JAUNDICE CHOLESTATIC [None]
  - DEEP VEIN THROMBOSIS [None]
  - THROMBOPHLEBITIS SUPERFICIAL [None]
  - CHOLELITHIASIS [None]
  - ROAD TRAFFIC ACCIDENT [None]
  - CHOLECYSTITIS ACUTE [None]
